FAERS Safety Report 11512937 (Version 1)
Quarter: 2015Q3

REPORT INFORMATION
  Report Type: Spontaneous
  Country: US (occurrence: US)
  Receive Date: 20150916
  Receipt Date: 20150916
  Transmission Date: 20151125
  Serious: No
  Sender: FDA-Public Use
  Company Number: US-GLENMARK PHARMACEUTICALS INC, USA.-2014GMK010730

PATIENT
  Age: 37 Year
  Sex: Female

DRUGS (5)
  1. NORETHINDRONE ACETATE TABLETS [Suspect]
     Active Substance: NORETHINDRONE ACETATE
     Dosage: 5 MG, QD
     Route: 048
     Dates: start: 20140427
  2. MORTIN [Concomitant]
     Dosage: UNK
  3. LUPRON DEPOT-PED [Suspect]
     Active Substance: LEUPROLIDE ACETATE
     Dosage: 3.75 MG PER MONTH
     Dates: start: 20140401
  4. NORDETTE [Concomitant]
     Active Substance: ETHINYL ESTRADIOL\LEVONORGESTREL
     Dosage: UNK MG, QD
     Dates: end: 201406
  5. LUPRON DEPOT-PED [Suspect]
     Active Substance: LEUPROLIDE ACETATE
     Dosage: 11.25 MG, EVERY 3 MONTHS
     Dates: start: 201404

REACTIONS (16)
  - Depression [Not Recovered/Not Resolved]
  - Muscle spasms [Not Recovered/Not Resolved]
  - Nausea [Unknown]
  - Drug ineffective [Unknown]
  - Breast pain [Unknown]
  - Feeling abnormal [Unknown]
  - Condition aggravated [Not Recovered/Not Resolved]
  - Abdominal pain [Unknown]
  - Hot flush [Unknown]
  - Back pain [Not Recovered/Not Resolved]
  - Mood swings [Unknown]
  - Pelvic pain [Recovered/Resolved]
  - Menorrhagia [Recovered/Resolved]
  - Metrorrhagia [Recovered/Resolved]
  - Migraine [Unknown]
  - Dizziness [Unknown]

NARRATIVE: CASE EVENT DATE: 20140711
